FAERS Safety Report 11294140 (Version 1)
Quarter: 2015Q3

REPORT INFORMATION
  Report Type: Spontaneous
  Country: US (occurrence: US)
  Receive Date: 20150722
  Receipt Date: 20150722
  Transmission Date: 20151125
  Serious: Yes (Hospitalization)
  Sender: FDA-Public Use
  Company Number: US-009507513-1507USA009030

PATIENT

DRUGS (1)
  1. DULERA [Suspect]
     Active Substance: FORMOTEROL FUMARATE DIHYDRATE\MOMETASONE FUROATE

REACTIONS (6)
  - Faeces soft [Unknown]
  - Nausea [Unknown]
  - Chills [Unknown]
  - Abdominal pain upper [Unknown]
  - Pyrexia [Unknown]
  - Dizziness [Unknown]
